FAERS Safety Report 6672046-4 (Version None)
Quarter: 2010Q2

REPORT INFORMATION
  Report Type: 
  Country: None (occurrence: None)
  Receive Date: 20100406
  Receipt Date: 20100325
  Transmission Date: 20101027
  Serious: Yes (Other)
  Sender: FDA-Public Use
  Company Number: 009349

PATIENT
  Age: 41 Year
  Sex: Female

DRUGS (2)
  1. KEPPRA [Suspect]
     Indication: COMPLEX PARTIAL SEIZURES
     Dosage: 250 MG, (1250 MG BID)
  2. TOPIRAMATE [Concomitant]

REACTIONS (5)
  - ALOPECIA [None]
  - ATONIC SEIZURES [None]
  - CONDITION AGGRAVATED [None]
  - CONVULSION [None]
  - EPILEPSY [None]
